FAERS Safety Report 5618936-2 (Version None)
Quarter: 2008Q1

REPORT INFORMATION
  Report Type: 
  Country: None (occurrence: None)
  Receive Date: 20080207
  Receipt Date: 20080130
  Transmission Date: 20080703
  Serious: Yes (Hospitalization, Other)
  Sender: FDA-Public Use
  Company Number: JP-PFIZER INC-2007099470

PATIENT
  Sex: Male
  Weight: 68 kg

DRUGS (15)
  1. DIFLUCAN [Suspect]
     Indication: PYREXIA
     Dosage: DAILY DOSE:100MG
     Route: 042
     Dates: start: 20071009, end: 20071012
  2. DIFLUCAN [Suspect]
     Indication: BLOOD BETA-D-GLUCAN INCREASED
     Dosage: DAILY DOSE:100MG
     Route: 042
     Dates: start: 20071101, end: 20071105
  3. PHENOBAL [Concomitant]
     Route: 048
  4. LASIX [Concomitant]
     Route: 048
     Dates: start: 20070317
  5. DEPAKENE [Concomitant]
     Route: 048
     Dates: start: 20070317
  6. GASMOTIN [Concomitant]
     Route: 048
     Dates: start: 20070317
  7. PRIMPERAN INJ [Concomitant]
     Route: 048
     Dates: start: 20070317
  8. DAIKENTYUTO [Concomitant]
     Route: 048
     Dates: start: 20070519
  9. LAXOBERON [Concomitant]
     Route: 048
     Dates: start: 20070611
  10. TARIVIT [Concomitant]
     Route: 031
     Dates: start: 20070317
  11. AMIGRAEN [Concomitant]
     Route: 042
     Dates: start: 20071005, end: 20071020
  12. VENOGLOBULIN [Concomitant]
     Route: 042
     Dates: start: 20071001, end: 20071003
  13. CILASTATIN SODIUM W/IMIPENEM [Concomitant]
     Route: 042
     Dates: start: 20071001, end: 20071007
  14. PENFILL R [Concomitant]
     Route: 058
     Dates: start: 20070317
  15. METRONIDAZOLE HCL [Concomitant]
     Route: 048
     Dates: start: 20071006, end: 20071015

REACTIONS (3)
  - MYOGLOBINURIA [None]
  - SHOCK [None]
  - VOMITING [None]
